FAERS Safety Report 12275707 (Version 4)
Quarter: 2016Q3

REPORT INFORMATION
  Report Type: Report from Study
  Country: DE (occurrence: DE)
  Receive Date: 20160418
  Receipt Date: 20160727
  Transmission Date: 20161109
  Serious: Yes (Hospitalization, Other)
  Sender: FDA-Public Use
  Company Number: DE-ROCHE-1730834

PATIENT
  Age: 79 Year
  Sex: Male
  Weight: 79 kg

DRUGS (1)
  1. ESBRIET [Suspect]
     Active Substance: PIRFENIDONE
     Indication: IDIOPATHIC PULMONARY FIBROSIS
     Route: 048
     Dates: start: 20150923, end: 20160408

REACTIONS (8)
  - Lip dry [Recovered/Resolved]
  - Skin reaction [Recovered/Resolved]
  - Muscular weakness [Unknown]
  - Back pain [Recovering/Resolving]
  - Hot flush [Unknown]
  - Pruritus [Unknown]
  - Pleural effusion [Not Recovered/Not Resolved]
  - Rash erythematous [Unknown]

NARRATIVE: CASE EVENT DATE: 201602
